FAERS Safety Report 10024714 (Version 1)
Quarter: 2014Q1

REPORT INFORMATION
  Report Type: Spontaneous
  Country: US (occurrence: None)
  Receive Date: 20140319
  Receipt Date: 20140319
  Transmission Date: 20141002
  Serious: Yes (Other)
  Sender: FDA-Public Use
  Company Number: None

PATIENT
  Age: 69 Year
  Sex: Female

DRUGS (2)
  1. TACROLIMUS [Suspect]
     Route: 048
     Dates: start: 20120116
  2. RAPAMUNE [Suspect]
     Indication: HEART TRANSPLANT
     Route: 048
     Dates: start: 20120116

REACTIONS (1)
  - Chest discomfort [None]
